FAERS Safety Report 11253604 (Version 1)
Quarter: 2015Q3

REPORT INFORMATION
  Report Type: Spontaneous
  Country: FR (occurrence: None)
  Receive Date: 20150707
  Receipt Date: 20150707
  Transmission Date: 20151125
  Serious: Yes (Other)
  Sender: FDA-Public Use
  Company Number: 2015FR0061

PATIENT
  Age: 16 Year
  Sex: Female

DRUGS (2)
  1. KINERET [Suspect]
     Active Substance: ANAKINRA
     Indication: JUVENILE IDIOPATHIC ARTHRITIS
     Dosage: 50 MG (100 MG, 1 IN 2 D)
     Route: 058
  2. PLEUROPERICARDITIS [Concomitant]

REACTIONS (10)
  - Pericarditis [None]
  - Injection site pain [None]
  - Erythema [None]
  - Scratch [None]
  - Inflammation [None]
  - Skin reaction [None]
  - Weight increased [None]
  - Pleurisy [None]
  - Feeling cold [None]
  - Oedema [None]

NARRATIVE: CASE EVENT DATE: 20150115
